FAERS Safety Report 9442295 (Version 1)
Quarter: 2013Q3

REPORT INFORMATION
  Report Type: Spontaneous
  Country: US (occurrence: US)
  Receive Date: 20130806
  Receipt Date: 20130806
  Transmission Date: 20140515
  Serious: No
  Sender: FDA-Public Use
  Company Number: US-GLAXOSMITHKLINE-A0995287A

PATIENT
  Age: 85 Year
  Sex: Female

DRUGS (3)
  1. ADVAIR [Suspect]
     Indication: LUNG NEOPLASM MALIGNANT
     Dosage: 2PUFF TWICE PER DAY
     Route: 055
     Dates: start: 2010
  2. ALBUTEROL [Concomitant]
  3. NORVASC [Concomitant]

REACTIONS (5)
  - Ocular hyperaemia [Not Recovered/Not Resolved]
  - Lacrimation increased [Unknown]
  - Intraocular pressure increased [Unknown]
  - Fatigue [Unknown]
  - Drug ineffective [Unknown]
